FAERS Safety Report 24090230 (Version 1)
Quarter: 2024Q3

REPORT INFORMATION
  Report Type: Report from Study
  Country: CA (occurrence: CA)
  Receive Date: 20240715
  Receipt Date: 20240715
  Transmission Date: 20241016
  Serious: Yes (Other)
  Sender: PIERRE FABRE MEDICAMENT
  Company Number: CA-PFM-2021-08011

PATIENT
  Age: 59 Year
  Sex: Female

DRUGS (3)
  1. PROPRANOLOL HYDROCHLORIDE [Suspect]
     Active Substance: PROPRANOLOL HYDROCHLORIDE
     Indication: Product used for unknown indication
     Dosage: UNK
     Route: 065
  2. FREMANEZUMAB [Suspect]
     Active Substance: FREMANEZUMAB
     Indication: Migraine prophylaxis
     Dosage: MONTHLY, LAST INJECTION DATE: 20-JAN-2021
     Route: 058
     Dates: start: 20210120
  3. AMITRIPTYLINE [Concomitant]
     Active Substance: AMITRIPTYLINE
     Indication: Product used for unknown indication
     Dosage: UNK
     Route: 065

REACTIONS (5)
  - Loss of consciousness [Unknown]
  - Paranasal sinus discomfort [Unknown]
  - Fatigue [Not Recovered/Not Resolved]
  - Product administered to patient of inappropriate age [Unknown]
  - Off label use [Unknown]
